FAERS Safety Report 10058326 (Version 1)
Quarter: 2014Q2

REPORT INFORMATION
  Report Type: Spontaneous
  Country: US (occurrence: None)
  Receive Date: 20140402
  Receipt Date: 20140402
  Transmission Date: 20141212
  Serious: Yes (Hospitalization)
  Sender: FDA-Public Use
  Company Number: FK201401067

PATIENT
  Age: 73 Year
  Sex: Male
  Weight: 81.4 kg

DRUGS (14)
  1. LEUCOVORIN [Suspect]
     Indication: PANCREATIC CARCINOMA
     Route: 042
     Dates: start: 20130930, end: 20131210
  2. ELOXATIN (OXALIPLATIN) (OXALIPLATIN) [Suspect]
     Indication: PANCREATIC CARCINOMA
     Route: 042
     Dates: start: 20130930, end: 20131210
  3. FLUOROURACIL (FLUOROURACIL) (FLUOROURACIL) [Suspect]
     Indication: PANCREATIC CARCINOMA
     Dosage: INTRAVENOUS BOLUS
     Route: 042
     Dates: start: 20130930, end: 20131210
  4. INVESTIGATIONAL DRUG [Suspect]
     Indication: PANCREATIC CARCINOMA
     Route: 048
     Dates: start: 20130930, end: 20131210
  5. IRINOTECAN HCL [Suspect]
     Indication: PANCREATIC CARCINOMA
     Route: 042
     Dates: start: 20130930, end: 20131210
  6. ASPIRIN (ACETYLSALICYLIC ACID) [Concomitant]
  7. ATORVASTATIN CALCIUM (ATORVASTATIN CALCIUM) [Concomitant]
  8. CLOPIDOGREL SULFATE (CLOPIDOGREL BISULFATE) [Concomitant]
  9. DRONABINOL (DRONABINOL) [Concomitant]
  10. ENOXAPARIN SODIUM (ENOXAPARIN SODIUM) [Concomitant]
  11. HYDROCODONE BITARTRATE/PARACETAMOL (VICODIN) [Concomitant]
  12. LOSARTAN POTASSIUM (LOSARTAN POTASSIUM) [Concomitant]
  13. SYMBICORT (BUDESONIDE W/FORMOTEROL FUMARATE) [Concomitant]
  14. TERAZOSIN (TERAZOSIN) (TERAZOSIN) [Concomitant]

REACTIONS (4)
  - Febrile neutropenia [None]
  - Abdominal pain [None]
  - Colitis [None]
  - Diverticulitis [None]
